FAERS Safety Report 6866925-2 (Version None)
Quarter: 2010Q3

REPORT INFORMATION
  Report Type: 
  Country: None (occurrence: None)
  Receive Date: 20100722
  Receipt Date: 20100715
  Transmission Date: 20110219
  Serious: Yes (Hospitalization)
  Sender: FDA-Public Use
  Company Number: ES-ROCHE-659717

PATIENT
  Sex: Female
  Weight: 57 kg

DRUGS (12)
  1. TRASTUZUMAB [Suspect]
     Dosage: LOSADING DOSE. DAY ONE OF CYCLE 1. DOSE LEVEL: 8MG/KG. (FROM PROTOCOL).
     Route: 042
     Dates: start: 20090812, end: 20090812
  2. TRASTUZUMAB [Suspect]
     Dosage: MAINTENANCE DOSE: DOSE LEVEL: 6 MG/KG. DOSASGE FORM: VIALS. LAST DOSE PRIOR TO SAE: 02 SEPT. 2009
     Route: 042
     Dates: start: 20090812, end: 20090923
  3. TRASTUZUMAB [Suspect]
     Dosage: DOSE LEVEL: 6 MG/KG.
     Route: 042
     Dates: start: 20091022
  4. DOCETAXEL [Suspect]
     Dosage: LAST DOSE PRIOR TO SAE: 2 SEPTEMBER 2009. DOSE LEVEL: 75 MG/M2. DOSAGE FORM: VIALS.
     Route: 042
     Dates: start: 20090812, end: 20090923
  5. DOCETAXEL [Suspect]
     Dosage: DOSE LEVEL 75 MG/M2
     Route: 042
     Dates: start: 20091022
  6. CARBOPLATIN [Suspect]
     Dosage: LAST DOSE PRIOR TO SAE: 02 SEPTEMBER 2009. DOSE LEVEL: 6 AUC.
     Route: 042
     Dates: start: 20090812, end: 20090923
  7. CARBOPLATIN [Suspect]
     Dosage: DOSE LEVEL: 6 AUC.
     Route: 042
     Dates: start: 20091022
  8. AMLODIPINE [Concomitant]
  9. DIOVAN HCT [Concomitant]
  10. TRIMETAZIDINE [Concomitant]
  11. RIVOTRIL [Concomitant]
  12. ADIRO [Concomitant]

REACTIONS (2)
  - AGITATION [None]
  - PANCYTOPENIA [None]
